FAERS Safety Report 18101969 (Version 1)
Quarter: 2020Q3

REPORT INFORMATION
  Report Type: Report from Study
  Country: None (occurrence: US)
  Receive Date: 20200803
  Receipt Date: 20200803
  Transmission Date: 20201103
  Serious: Yes (Hospitalization)
  Sender: FDA-Public Use
  Company Number: US-ABBVIE-20K-163-3435864-00

PATIENT
  Sex: Female
  Weight: 69.46 kg

DRUGS (2)
  1. ALEVE [Concomitant]
     Active Substance: NAPROXEN SODIUM
     Indication: PRODUCT USED FOR UNKNOWN INDICATION
  2. HUMIRA [Suspect]
     Active Substance: ADALIMUMAB
     Indication: PSORIATIC ARTHROPATHY
     Dosage: 0.4 ML
     Route: 058
     Dates: start: 201805

REACTIONS (3)
  - Meniscus injury [Unknown]
  - Psoriatic arthropathy [Unknown]
  - Osteoarthritis [Unknown]
